FAERS Safety Report 6221768-8 (Version None)
Quarter: 2009Q2

REPORT INFORMATION
  Report Type: 
  Country: None (occurrence: None)
  Receive Date: 20090608
  Receipt Date: 20090528
  Transmission Date: 20091009
  Serious: Yes (Hospitalization)
  Sender: FDA-Public Use
  Company Number: 2008US001186

PATIENT
  Age: 40 Year
  Sex: Male
  Weight: 77.1 kg

DRUGS (2)
  1. PROTOPIC [Suspect]
     Indication: ECZEMA
     Dosage: UID/QD, TOPICAL
     Route: 061
     Dates: start: 20051101, end: 20060601
  2. ZYRTEC [Concomitant]

REACTIONS (14)
  - BACK PAIN [None]
  - BODY TEMPERATURE INCREASED [None]
  - BONE MARROW FAILURE [None]
  - CHRONIC OBSTRUCTIVE PULMONARY DISEASE [None]
  - HAEMATURIA [None]
  - HODGKIN'S DISEASE STAGE IV [None]
  - LUNG DISORDER [None]
  - LYMPHADENOPATHY [None]
  - METASTASES TO SPINE [None]
  - NON-HODGKIN'S LYMPHOMA RECURRENT [None]
  - RASH [None]
  - RASH PRURITIC [None]
  - RED BLOOD CELL SEDIMENTATION RATE INCREASED [None]
  - STEM CELL TRANSPLANT [None]
